FAERS Safety Report 5097215-9 (Version None)
Quarter: 2006Q3

REPORT INFORMATION
  Report Type: 
  Country: None (occurrence: None)
  Receive Date: 20060906
  Receipt Date: 20060810
  Transmission Date: 20061208
  Serious: Yes (Other)
  Sender: FDA-Public Use
  Company Number: US-ROCHE-459711

PATIENT
  Age: 72 Year
  Sex: Female
  Weight: 91.6 kg

DRUGS (1)
  1. BONIVA [Suspect]
     Indication: OSTEOPOROSIS
     Dosage: STRENGTH 3MG/3ML
     Route: 042
     Dates: start: 20060801

REACTIONS (11)
  - ACCIDENTAL EXPOSURE [None]
  - ACUTE PHASE REACTION [None]
  - CHILLS [None]
  - DEVICE BREAKAGE [None]
  - DRUG ADMINISTRATION ERROR [None]
  - IATROGENIC INJURY [None]
  - INJECTION SITE ERYTHEMA [None]
  - INJECTION SITE WARMTH [None]
  - PHARMACEUTICAL PRODUCT COMPLAINT [None]
  - PYREXIA [None]
  - RASH PAPULAR [None]
